FAERS Safety Report 9525041 (Version 1)
Quarter: 2013Q3

REPORT INFORMATION
  Report Type: Spontaneous
  Country: US (occurrence: None)
  Receive Date: 20130913
  Receipt Date: 20130913
  Transmission Date: 20140515
  Serious: Yes (Other)
  Sender: FDA-Public Use
  Company Number: None

PATIENT
  Age: 44 Year
  Sex: Male
  Weight: 88 kg

DRUGS (2)
  1. RISPERIDONE [Suspect]
     Dates: start: 20130621, end: 20130624
  2. HALOPERIDOL DECANOATE [Concomitant]

REACTIONS (1)
  - Body temperature decreased [None]
